FAERS Safety Report 10261396 (Version 1)
Quarter: 2014Q2

REPORT INFORMATION
  Report Type: Other
  Country: TR (occurrence: TR)
  Receive Date: 20140626
  Receipt Date: 20140626
  Transmission Date: 20141212
  Serious: Yes (Death, Hospitalization, Other)
  Sender: FDA-Public Use
  Company Number: TR-LUPIN PHARMACEUTICALS INC.-2014-01185

PATIENT
  Age: 77 Year
  Sex: Female

DRUGS (2)
  1. QUETIAPINE [Suspect]
     Indication: AGITATION
     Route: 065
  2. QUETIAPINE [Suspect]
     Indication: INSOMNIA

REACTIONS (2)
  - Acute hepatic failure [Fatal]
  - Multi-organ failure [Fatal]
